FAERS Safety Report 4957513-3 (Version None)
Quarter: 2006Q1

REPORT INFORMATION
  Report Type: 
  Country: None (occurrence: None)
  Receive Date: 20060330
  Receipt Date: 20051207
  Transmission Date: 20060701
  Serious: Yes (Other)
  Sender: FDA-Public Use
  Company Number: US-GLAXOSMITHKLINE-A0584980A

PATIENT
  Age: 5 Year
  Sex: Female

DRUGS (3)
  1. FLOVENT [Suspect]
     Indication: ASTHMA
     Dosage: 2PUFF TWICE PER DAY
     Route: 055
     Dates: start: 20050101
  2. FLOVENT [Suspect]
     Dosage: 2PUFF TWICE PER DAY
     Route: 055
     Dates: start: 20030101, end: 20050101
  3. ALBUTEROL [Concomitant]

REACTIONS (2)
  - PNEUMONIA [None]
  - STOMACH DISCOMFORT [None]
